FAERS Safety Report 5917242-6 (Version None)
Quarter: 2008Q4

REPORT INFORMATION
  Report Type: 
  Country: None (occurrence: None)
  Receive Date: 20081009
  Receipt Date: 20081003
  Transmission Date: 20090506
  Serious: Yes (Hospitalization)
  Sender: FDA-Public Use
  Company Number: 2008AL006747

PATIENT
  Age: 65 Year
  Sex: Female
  Weight: 127.0072 kg

DRUGS (11)
  1. DIGOXIN [Suspect]
     Indication: CARDIAC FIBRILLATION
     Dosage: 0.125MG, DAILY, PO
     Route: 048
     Dates: start: 20060201, end: 20080201
  2. PLAVIX [Concomitant]
  3. SYNTHROID [Concomitant]
  4. COUMADIN [Concomitant]
  5. METOPROLOL TARTRATE [Concomitant]
  6. PREVACID [Concomitant]
  7. PREDNISONE TAB [Concomitant]
  8. EFFEXOR XR [Concomitant]
  9. VYTORIN [Concomitant]
  10. COLCHICINE [Concomitant]
  11. FUROSEMIDE [Concomitant]

REACTIONS (3)
  - DYSPNOEA [None]
  - PALPITATIONS [None]
  - PERICARDITIS [None]
